FAERS Safety Report 7018887-5 (Version None)
Quarter: 2010Q3

REPORT INFORMATION
  Report Type: 
  Country: None (occurrence: None)
  Receive Date: 20100928
  Receipt Date: 20100920
  Transmission Date: 20110219
  Serious: Yes (Other)
  Sender: FDA-Public Use
  Company Number: GXKR2010IN10709

PATIENT
  Age: 18 Year
  Sex: Female

DRUGS (1)
  1. OFLOXACIN (NGX) [Suspect]
     Indication: URINARY TRACT INFECTION
     Dosage: UNK
     Route: 065

REACTIONS (9)
  - ARTHRALGIA [None]
  - BLISTER [None]
  - BONE PAIN [None]
  - ERYTHEMA [None]
  - LEPROMATOUS LEPROSY [None]
  - PYREXIA [None]
  - SKIN HYPOPIGMENTATION [None]
  - SKIN LESION [None]
  - SKIN PLAQUE [None]
